FAERS Safety Report 25072010 (Version 1)
Quarter: 2025Q1

REPORT INFORMATION
  Report Type: Spontaneous
  Country: DE (occurrence: US)
  Receive Date: 20250313
  Receipt Date: 20250313
  Transmission Date: 20250408
  Serious: No
  Sender: JOHNSON AND JOHNSON
  Company Number: DE-JNJFOC-20250276789

PATIENT
  Age: 26 Year
  Sex: Male

DRUGS (1)
  1. REMICADE [Suspect]
     Active Substance: INFLIXIMAB
     Indication: Crohn^s disease
     Route: 065

REACTIONS (7)
  - Decreased immune responsiveness [Unknown]
  - Influenza [Unknown]
  - Coronavirus infection [Unknown]
  - Herpes zoster [Unknown]
  - Weight decreased [Unknown]
  - Illness [Unknown]
  - Asthenia [Unknown]
